FAERS Safety Report 11028041 (Version 1)
Quarter: 2015Q2

REPORT INFORMATION
  Report Type: Spontaneous
  Country: US (occurrence: US)
  Receive Date: 20150414
  Receipt Date: 20150414
  Transmission Date: 20150821
  Serious: Yes (Hospitalization, Other)
  Sender: FDA-Public Use
  Company Number: US-GLAXOSMITHKLINE-US2015GSK049950

PATIENT
  Age: 53 Year
  Sex: Female

DRUGS (1)
  1. BUPROPION SR [Suspect]
     Active Substance: BUPROPION
     Indication: PRODUCT USED FOR UNKNOWN INDICATION
     Dosage: ^A BOTTLE^

REACTIONS (15)
  - Confusional state [Unknown]
  - Rhabdomyolysis [Unknown]
  - Ataxia [Unknown]
  - Overdose [Unknown]
  - Gait disturbance [Unknown]
  - Agitation [Unknown]
  - Neurological symptom [Unknown]
  - Blood lactic acid increased [Unknown]
  - Tremor [Unknown]
  - Nystagmus [Unknown]
  - Blood prolactin increased [Unknown]
  - Suicide attempt [Unknown]
  - Electrocardiogram QT prolonged [Recovering/Resolving]
  - Blood creatine phosphokinase increased [Unknown]
  - Hallucination, visual [Unknown]
